FAERS Safety Report 19845828 (Version 1)
Quarter: 2021Q3

REPORT INFORMATION
  Report Type: Spontaneous
  Country: US (occurrence: US)
  Receive Date: 20210916
  Receipt Date: 20210916
  Transmission Date: 20211014
  Serious: Yes (Other)
  Sender: FDA-Public Use
  Company Number: US-AMARIN PHARMA, INC.-2021AMR000620

PATIENT
  Sex: Female

DRUGS (2)
  1. VASCEPA [Suspect]
     Active Substance: ICOSAPENT ETHYL
     Indication: LIPIDS INCREASED
  2. VASCEPA [Suspect]
     Active Substance: ICOSAPENT ETHYL
     Indication: BLOOD TRIGLYCERIDES INCREASED

REACTIONS (4)
  - Product odour abnormal [Unknown]
  - Nausea [Unknown]
  - Product taste abnormal [Unknown]
  - Implantable defibrillator insertion [Recovered/Resolved]

NARRATIVE: CASE EVENT DATE: 2021
